FAERS Safety Report 9813461 (Version 1)
Quarter: 2014Q1

REPORT INFORMATION
  Report Type: Spontaneous
  Country: JP (occurrence: JP)
  Receive Date: 20140113
  Receipt Date: 20140113
  Transmission Date: 20141002
  Serious: No
  Sender: FDA-Public Use
  Company Number: JP-B.I. PHARMACEUTICALS,INC./RIDGEFIELD-2014-BI-01242NB

PATIENT
  Age: 64 Year
  Sex: Male

DRUGS (2)
  1. TRAZENTA [Suspect]
     Indication: TYPE 2 DIABETES MELLITUS
     Dosage: 5 MG
     Route: 048
     Dates: start: 20140106, end: 20140109
  2. PLAVIX [Concomitant]
     Indication: THROMBOTIC CEREBRAL INFARCTION
     Dosage: 75 MG
     Route: 048
     Dates: start: 20131223

REACTIONS (1)
  - Urticaria [Unknown]
